FAERS Safety Report 21296704 (Version 2)
Quarter: 2022Q3

REPORT INFORMATION
  Report Type: Spontaneous
  Country: JP (occurrence: JP)
  Receive Date: 20220906
  Receipt Date: 20220919
  Transmission Date: 20221027
  Serious: Yes (Hospitalization)
  Sender: FDA-Public Use
  Company Number: JP-TEVA-2022-JP-2070351

PATIENT
  Age: 60 Year
  Sex: Male
  Weight: 62 kg

DRUGS (10)
  1. LEVOFLOXACIN [Suspect]
     Active Substance: LEVOFLOXACIN
     Indication: COVID-19 pneumonia
     Dosage: 500 MILLIGRAM DAILY;
     Route: 065
  2. LEVOFLOXACIN [Suspect]
     Active Substance: LEVOFLOXACIN
     Indication: Pneumonia bacterial
  3. TACROLIMUS [Interacting]
     Active Substance: TACROLIMUS
     Indication: Prophylaxis against transplant rejection
     Dosage: DOSAGE TEXT: INITIALLY RECEIVED 2MG AFTER KIDNEY TRANSPLANT. DOSE WAS REDUCED TO 1.5MG BEFORE INT...
     Route: 048
  4. EVEROLIMUS [Interacting]
     Active Substance: EVEROLIMUS
     Indication: Prophylaxis against transplant rejection
     Dosage: 1 MILLIGRAM DAILY;
     Route: 065
  5. CASIRIVIMAB\IMDEVIMAB [Interacting]
     Active Substance: CASIRIVIMAB\IMDEVIMAB
     Indication: COVID-19 pneumonia
     Dosage: DOSAGE TEXT: SINGLE INJECTION OF CASIRIVIMAB/IMDEVIMAB 1200MG
     Route: 065
  6. CASIRIVIMAB\IMDEVIMAB [Interacting]
     Active Substance: CASIRIVIMAB\IMDEVIMAB
     Indication: Pneumonia bacterial
  7. BARICITINIB [Suspect]
     Active Substance: BARICITINIB
     Indication: COVID-19 pneumonia
     Dosage: 4 MILLIGRAM DAILY;
     Route: 065
  8. BARICITINIB [Suspect]
     Active Substance: BARICITINIB
     Indication: Pneumonia bacterial
  9. REMDESIVIR [Interacting]
     Active Substance: REMDESIVIR
     Indication: COVID-19 pneumonia
     Dosage: DOSAGE TEXT: IV REMDESIVIR 200MG ONCE DAILY INITIALLY, FOLLOWED BY 100MG ONCE DAILY FOR 4DAYS
     Route: 042
  10. REMDESIVIR [Interacting]
     Active Substance: REMDESIVIR
     Indication: Pneumonia bacterial

REACTIONS (4)
  - Drug level increased [Unknown]
  - Drug interaction [Unknown]
  - Therapy non-responder [Unknown]
  - Off label use [Unknown]
